FAERS Safety Report 5732656-5 (Version None)
Quarter: 2008Q2

REPORT INFORMATION
  Report Type: 
  Country: None (occurrence: None)
  Receive Date: 20080508
  Receipt Date: 20080428
  Transmission Date: 20081010
  Serious: Yes (Other)
  Sender: FDA-Public Use
  Company Number: HQWYE444927JUL04

PATIENT
  Sex: Female

DRUGS (7)
  1. PREMPRO [Suspect]
  2. ESTRACE [Suspect]
  3. MEDROXYPROGESTERONE [Suspect]
  4. DEPO-PROVERA [Suspect]
  5. PREMARIN [Suspect]
     Indication: MENOPAUSAL SYMPTOMS
     Dosage: 0.625 MG (FREQUENCY UNSPECIFIED)
     Dates: start: 19850101, end: 19970801
  6. PREMARIN [Suspect]
     Dosage: 0.625 MG (FREQUENCY UNSPECIFIED)
     Dates: start: 20010501, end: 20020801
  7. PROVERA [Suspect]

REACTIONS (1)
  - BREAST CANCER [None]
